FAERS Safety Report 10716599 (Version 1)
Quarter: 2015Q1

REPORT INFORMATION
  Report Type: Spontaneous
  Country: US (occurrence: None)
  Receive Date: 20150115
  Receipt Date: 20150115
  Transmission Date: 20150721
  Serious: Yes (Other)
  Sender: FDA-Public Use
  Company Number: None

PATIENT
  Age: 37 Year
  Sex: Male
  Weight: 167.38 kg

DRUGS (2)
  1. LATUDA [Suspect]
     Active Substance: LURASIDONE HYDROCHLORIDE
     Indication: PSYCHOTHERAPY
     Dosage: 2 TABLETS DAILY TWICE DAILY TAKEN BY MOUTH
     Route: 048
     Dates: start: 20130417
  2. RISPERDONE 3 TO 4 MG LUPIN [Suspect]
     Active Substance: RISPERIDONE
     Indication: PSYCHOTHERAPY

REACTIONS (4)
  - Intentional self-injury [None]
  - Weight increased [None]
  - Drug ineffective [None]
  - Aggression [None]

NARRATIVE: CASE EVENT DATE: 20130417
